FAERS Safety Report 7326297-6 (Version None)
Quarter: 2011Q1

REPORT INFORMATION
  Report Type: 
  Country: None (occurrence: None)
  Receive Date: 20110302
  Receipt Date: 20110225
  Transmission Date: 20110831
  Serious: Yes (Other)
  Sender: FDA-Public Use
  Company Number: A0916006A

PATIENT
  Sex: Female

DRUGS (2)
  1. SEREVENT [Suspect]
     Route: 065
  2. FLOVENT [Suspect]
     Route: 065

REACTIONS (1)
  - CATARACT [None]
